FAERS Safety Report 12283062 (Version 1)
Quarter: 2016Q2

REPORT INFORMATION
  Report Type: Spontaneous
  Country: GB (occurrence: US)
  Receive Date: 20160419
  Receipt Date: 20160419
  Transmission Date: 20160815
  Serious: Yes (Life-Threatening)
  Sender: FDA-Public Use
  Company Number: GB-SCIEGEN PHARMACEUTICALS INC-2016SCILIT00076

PATIENT
  Age: 27 Year
  Sex: Female

DRUGS (2)
  1. METFORMIN HYDROCHLORIDE TABLETS, USP [Suspect]
     Active Substance: METFORMIN HYDROCHLORIDE
     Indication: GESTATIONAL DIABETES
     Dosage: UNK
     Route: 065
  2. FLUOXETINE CAPSULES, USP [Suspect]
     Active Substance: FLUOXETINE HYDROCHLORIDE
     Indication: PRODUCT USED FOR UNKNOWN INDICATION
     Dosage: 40 MG, UNK
     Route: 065

REACTIONS (9)
  - Glycosuria [Unknown]
  - Tenderness [Unknown]
  - Malaise [Unknown]
  - Metabolic acidosis [Recovered/Resolved]
  - Hypertension [Unknown]
  - Anaemia [Unknown]
  - Tachypnoea [Unknown]
  - Tachycardia [Unknown]
  - Neutrophilia [Unknown]
